FAERS Safety Report 23186045 (Version 4)
Quarter: 2024Q1

REPORT INFORMATION
  Report Type: Spontaneous
  Country: GR (occurrence: GR)
  Receive Date: 20231115
  Receipt Date: 20240125
  Transmission Date: 20240410
  Serious: No
  Sender: FDA-Public Use
  Company Number: GR-PFIZER INC-PV202300179474

PATIENT
  Age: 15 Year
  Sex: Male
  Weight: 72 kg

DRUGS (1)
  1. GENOTROPIN [Suspect]
     Active Substance: SOMATROPIN
     Indication: Body height decreased
     Dosage: 1,8MG 4 DAYS, 1,6MG 2 DAYS/6DAYS
     Route: 058
     Dates: start: 202310

REACTIONS (2)
  - Poor quality device used [Unknown]
  - Device breakage [Unknown]
